FAERS Safety Report 23653452 (Version 1)
Quarter: 2024Q1

REPORT INFORMATION
  Report Type: Spontaneous
  Country: US (occurrence: US)
  Receive Date: 20240320
  Receipt Date: 20240320
  Transmission Date: 20240410
  Serious: Yes (Other)
  Sender: FDA-Public Use
  Company Number: US-AMGEN-USASP2024050993

PATIENT
  Age: 2 Year
  Sex: Female

DRUGS (11)
  1. ETANERCEPT [Suspect]
     Active Substance: ETANERCEPT
     Indication: Juvenile idiopathic arthritis
     Dosage: 25 MILLIGRAM, QWK
     Route: 065
  2. INFLIXIMAB [Suspect]
     Active Substance: INFLIXIMAB
     Indication: Blau syndrome
     Dosage: 10 MILLIGRAM/KILOGRAM, QMO
     Route: 065
  3. INFLIXIMAB [Suspect]
     Active Substance: INFLIXIMAB
     Dosage: 14.5 MILLIGRAM/KILOGRAM, QMO
     Route: 065
  4. NAPROXEN [Concomitant]
     Active Substance: NAPROXEN
     Indication: Juvenile idiopathic arthritis
     Dosage: UNK
     Route: 065
  5. METHOTREXATE [Concomitant]
     Active Substance: METHOTREXATE
     Indication: Juvenile idiopathic arthritis
     Dosage: 15 MILLIGRAM/SQ. METER, QWK (INJECTIONS)
     Route: 065
  6. SOLU-MEDROL [Concomitant]
     Active Substance: METHYLPREDNISOLONE SODIUM SUCCINATE
     Dosage: 6 MILLIGRAM, Q6H
     Route: 042
  7. SOLU-MEDROL [Concomitant]
     Active Substance: METHYLPREDNISOLONE SODIUM SUCCINATE
     Dosage: 1 GRAM
     Route: 065
  8. PREDNISOLONE [Concomitant]
     Active Substance: PREDNISOLONE
     Dosage: UNK
     Route: 065
  9. ADALIMUMAB [Concomitant]
     Active Substance: ADALIMUMAB\ISOPROPYL ALCOHOL
     Indication: Blau syndrome
     Dosage: 1 MILLIGRAM/KILOGRAM, QWK (INJECTION)
     Route: 065
  10. ADALIMUMAB [Concomitant]
     Active Substance: ADALIMUMAB\ISOPROPYL ALCOHOL
     Dosage: 20 MILLIGRAM, Q2WK (INJECTIONS)
     Route: 065
  11. CELLCEPT [Concomitant]
     Active Substance: MYCOPHENOLATE MOFETIL
     Indication: Blau syndrome
     Dosage: 500 MILLIGRAM, BID
     Route: 048

REACTIONS (9)
  - Tubulointerstitial nephritis [Not Recovered/Not Resolved]
  - Sialoadenitis [Unknown]
  - Glomerulonephritis [Not Recovered/Not Resolved]
  - Glomerulonephropathy [Unknown]
  - Blau syndrome [Unknown]
  - Toxicity to various agents [Unknown]
  - Benign familial haematuria [Unknown]
  - Dehydration [Unknown]
  - Off label use [Unknown]
